FAERS Safety Report 9753033 (Version 1)
Quarter: 2013Q4

REPORT INFORMATION
  Report Type: Spontaneous
  Country: ES (occurrence: ES)
  Receive Date: 20131213
  Receipt Date: 20131213
  Transmission Date: 20140711
  Serious: Yes (Hospitalization)
  Sender: FDA-Public Use
  Company Number: ES-009507513-1312ESP005643

PATIENT
  Age: 61 Year
  Sex: Female

DRUGS (1)
  1. VICTRELIS [Suspect]
     Indication: CHRONIC HEPATITIS C
     Dosage: 800 MG/8 HOURS
     Route: 048
     Dates: start: 20130222, end: 20131121

REACTIONS (1)
  - Pneumonia [Recovering/Resolving]
